FAERS Safety Report 19051442 (Version 1)
Quarter: 2021Q1

REPORT INFORMATION
  Report Type: Report from Study
  Country: US (occurrence: US)
  Receive Date: 20210324
  Receipt Date: 20210324
  Transmission Date: 20210420
  Serious: Yes (Hospitalization, Other)
  Sender: FDA-Public Use
  Company Number: US-TEVA-2021-US-1892018

PATIENT
  Age: 56 Year

DRUGS (5)
  1. IDARUBICIN [Suspect]
     Active Substance: IDARUBICIN
     Indication: ACUTE MYELOID LEUKAEMIA
     Dosage: 21.4 MILLIGRAM DAILY;
     Route: 042
     Dates: start: 20180713, end: 20180715
  2. ALBUTEROL. [Concomitant]
     Active Substance: ALBUTEROL
     Route: 065
     Dates: start: 20180729
  3. CYTARABINE. [Suspect]
     Active Substance: CYTARABINE
     Indication: ACUTE MYELOID LEUKAEMIA
     Dosage: 178 MILLIGRAM DAILY;
     Route: 042
     Dates: start: 20180713, end: 20180719
  4. ASP2215 [Suspect]
     Active Substance: GILTERITINIB
     Indication: ACUTE MYELOID LEUKAEMIA
     Dosage: 120 MILLIGRAM DAILY;
     Route: 048
     Dates: start: 20180720, end: 20180802
  5. IPRATROPIUM [Concomitant]
     Active Substance: IPRATROPIUM
     Dates: start: 20180729

REACTIONS (2)
  - Febrile neutropenia [Not Recovered/Not Resolved]
  - Respiratory failure [Recovered/Resolved]

NARRATIVE: CASE EVENT DATE: 20180723
